FAERS Safety Report 5174306-5 (Version None)
Quarter: 2006Q4

REPORT INFORMATION
  Report Type: 
  Country: None (occurrence: None)
  Receive Date: 20061206
  Receipt Date: 20061201
  Transmission Date: 20070319
  Serious: Yes (Death)
  Sender: FDA-Public Use
  Company Number: 163-21880-06110091

PATIENT
  Age: 77 Year
  Sex: Male

DRUGS (2)
  1. REVLIMID [Suspect]
     Indication: MYELODYSPLASTIC SYNDROME
     Dosage: 5 MG, 1 IN 1 D, ORAL
     Route: 048
     Dates: start: 20061013, end: 20060101
  2. REVLIMID [Suspect]

REACTIONS (13)
  - DIARRHOEA [None]
  - DRY MOUTH [None]
  - EPISTAXIS [None]
  - EYE PAIN [None]
  - FATIGUE [None]
  - HYPOAESTHESIA [None]
  - HYPOGEUSIA [None]
  - MUSCULOSKELETAL PAIN [None]
  - OCULAR HYPERAEMIA [None]
  - PLATELET COUNT DECREASED [None]
  - PYREXIA [None]
  - RHINORRHOEA [None]
  - STOMATITIS [None]
